FAERS Safety Report 23909892 (Version 1)
Quarter: 2024Q2

REPORT INFORMATION
  Report Type: Spontaneous
  Country: US (occurrence: None)
  Receive Date: 20240524
  Receipt Date: 20240524
  Transmission Date: 20240716
  Serious: No
  Sender: FDA-Public Use
  Company Number: None

PATIENT

DRUGS (4)
  1. ATORVASTATIN [Suspect]
     Active Substance: ATORVASTATIN
  2. PANTOPRAZOLE [Suspect]
     Active Substance: PANTOPRAZOLE
  3. SUCRALFATE [Suspect]
     Active Substance: SUCRALFATE
  4. CHLORTHALIDONE [Suspect]
     Active Substance: CHLORTHALIDONE

REACTIONS (15)
  - Product dispensing error [None]
  - General physical health deterioration [None]
  - Abdominal pain upper [None]
  - Decreased appetite [None]
  - Faeces discoloured [None]
  - Haematochezia [None]
  - Muscle fatigue [None]
  - Myalgia [None]
  - Rectal haemorrhage [None]
  - Mouth haemorrhage [None]
  - Haemoglobin decreased [None]
  - Pulse absent [None]
  - Coma [None]
  - Arterial rupture [None]
  - Gastric ulcer haemorrhage [None]

NARRATIVE: CASE EVENT DATE: 20240311
